APPROVED DRUG PRODUCT: VERZENIO
Active Ingredient: ABEMACICLIB
Strength: 200MG
Dosage Form/Route: TABLET;ORAL
Application: N208716 | Product #004
Applicant: ELI LILLY AND CO
Approved: Sep 28, 2017 | RLD: Yes | RS: Yes | Type: RX

PATENTS:
Patent 7855211 | Expires: Sep 28, 2031
Patent 7855211 | Expires: Sep 28, 2031
Patent 7855211 | Expires: Sep 28, 2031
Patent 7855211 | Expires: Sep 28, 2031
Patent 7855211 | Expires: Sep 28, 2031